FAERS Safety Report 6850892-1 (Version None)
Quarter: 2010Q3

REPORT INFORMATION
  Report Type: 
  Country: None (occurrence: None)
  Receive Date: 20100716
  Receipt Date: 20071025
  Transmission Date: 20110219
  Serious: Yes (Other)
  Sender: FDA-Public Use
  Company Number: US-PFIZER INC-2007090602

PATIENT
  Sex: Female
  Weight: 90.909 kg

DRUGS (5)
  1. CHANTIX [Suspect]
     Indication: SMOKING CESSATION THERAPY
     Dates: start: 20071022
  2. ZOCOR [Concomitant]
     Indication: BLOOD CHOLESTEROL
  3. PROZAC [Concomitant]
  4. GEODON [Concomitant]
  5. KLONOPIN [Concomitant]

REACTIONS (2)
  - HOT FLUSH [None]
  - HYPERTENSION [None]
